FAERS Safety Report 4848111-0 (Version None)
Quarter: 2005Q4

REPORT INFORMATION
  Report Type: 
  Country: None (occurrence: None)
  Receive Date: 20051206
  Receipt Date: 20051123
  Transmission Date: 20060501
  Serious: Yes (Hospitalization)
  Sender: FDA-Public Use
  Company Number: GBWYE880303AUG05

PATIENT
  Age: 38 Year
  Sex: Female

DRUGS (3)
  1. EFFEXOR [Suspect]
     Indication: BIPOLAR DISORDER
     Dosage: 225 MG,; 150 MG,
     Route: 048
     Dates: end: 20050101
  2. EFFEXOR [Suspect]
     Indication: BIPOLAR DISORDER
     Dosage: 225 MG,; 150 MG,
     Route: 048
     Dates: start: 20050101
  3. VALPROATE SODIUM [Suspect]
     Dosage: 800 MG 2X PER 1 DAY
     Route: 048

REACTIONS (3)
  - DRUG EXPOSURE DURING PREGNANCY [None]
  - PREGNANCY [None]
  - UTERINE LEIOMYOMA [None]
